FAERS Safety Report 15155872 (Version 1)
Quarter: 2018Q3

REPORT INFORMATION
  Report Type: Spontaneous
  Country: GB (occurrence: GB)
  Receive Date: 20180717
  Receipt Date: 20180717
  Transmission Date: 20181010
  Serious: Yes (Hospitalization)
  Sender: FDA-Public Use
  Company Number: GB-US WORLDMEDS, LLC-STA_00020344

PATIENT
  Sex: Male

DRUGS (1)
  1. APOMORPHINE HYDROCHLORIDE [Suspect]
     Active Substance: APOMORPHINE HYDROCHLORIDE
     Indication: PARKINSON^S DISEASE
     Dosage: 2 INJECTIONS PER DAY
     Dates: start: 200808

REACTIONS (11)
  - Depression [Unknown]
  - Muscle spasms [Unknown]
  - Dysphemia [Unknown]
  - Cough [Unknown]
  - Pharyngitis [Unknown]
  - Apathy [Unknown]
  - Panic attack [Unknown]
  - Nasal congestion [Unknown]
  - Catarrh [Unknown]
  - Influenza like illness [Not Recovered/Not Resolved]
  - Cognitive disorder [Unknown]

NARRATIVE: CASE EVENT DATE: 200808
